FAERS Safety Report 25592073 (Version 1)
Quarter: 2025Q3

REPORT INFORMATION
  Report Type: Spontaneous
  Country: KW (occurrence: KW)
  Receive Date: 20250722
  Receipt Date: 20250722
  Transmission Date: 20251021
  Serious: Yes (Death)
  Sender: PFIZER
  Company Number: KW-PFIZER INC-PV202500086651

PATIENT
  Age: 28 Year
  Sex: Male

DRUGS (1)
  1. SUTENT [Suspect]
     Active Substance: SUNITINIB MALATE
     Indication: Metastatic renal cell carcinoma
     Dosage: 50 MG, DAILY
     Route: 048

REACTIONS (1)
  - Oesophageal haemorrhage [Fatal]

NARRATIVE: CASE EVENT DATE: 20250716
